FAERS Safety Report 16674102 (Version 2)
Quarter: 2019Q3

REPORT INFORMATION
  Report Type: Spontaneous
  Country: US (occurrence: US)
  Receive Date: 20190806
  Receipt Date: 20190902
  Transmission Date: 20191004
  Serious: Yes (Death, Other)
  Sender: FDA-Public Use
  Company Number: US-GILEAD-2019-0422164

PATIENT
  Age: 36 Year
  Sex: Male

DRUGS (5)
  1. TRUVADA [Suspect]
     Active Substance: EMTRICITABINE\TENOFOVIR DISOPROXIL FUMARATE
     Indication: HIV INFECTION
     Dosage: UNK
     Route: 065
  2. MARAVIROC [Concomitant]
     Active Substance: MARAVIROC
  3. RILPIVIRINE [Concomitant]
     Active Substance: RILPIVIRINE
  4. DOLUTEGRAVIR [Concomitant]
     Active Substance: DOLUTEGRAVIR
  5. ZIDOVUDINE. [Concomitant]
     Active Substance: ZIDOVUDINE

REACTIONS (1)
  - Immune reconstitution inflammatory syndrome [Fatal]
